FAERS Safety Report 9028648 (Version 1)
Quarter: 2013Q1

REPORT INFORMATION
  Report Type: Spontaneous
  Country: US (occurrence: US)
  Receive Date: 20130124
  Receipt Date: 20130124
  Transmission Date: 20140127
  Serious: Yes (Other)
  Sender: FDA-Public Use
  Company Number: US-BAYER-2013-005625

PATIENT
  Age: 59 Year
  Sex: Female
  Weight: 97.51 kg

DRUGS (8)
  1. ALKA-SELTZER PLUS COLD + COUGH [Suspect]
     Indication: NASOPHARYNGITIS
     Dosage: 2 DF, QD
     Route: 048
     Dates: start: 20130111, end: 20130112
  2. DYAZIDE [Concomitant]
  3. LIPITOR [Concomitant]
  4. LABETALOL [Concomitant]
  5. MECLIZINE [Concomitant]
  6. XANAX [Concomitant]
  7. IRON SUPPLEMENT [Concomitant]
  8. CENTRUM SILVER [Concomitant]

REACTIONS (1)
  - Dyspnoea [Recovered/Resolved]
